FAERS Safety Report 20368447 (Version 3)
Quarter: 2022Q2

REPORT INFORMATION
  Report Type: Report from Study
  Country: JP (occurrence: JP)
  Receive Date: 20220124
  Receipt Date: 20220630
  Transmission Date: 20220721
  Serious: Yes (Other)
  Sender: FDA-Public Use
  Company Number: JP-UCBJ-CD202200443UCBPHAPROD

PATIENT
  Age: 71 Year
  Sex: Female
  Weight: 70.1 kg

DRUGS (4)
  1. LACOSAMIDE [Suspect]
     Active Substance: LACOSAMIDE
     Indication: Focal dyscognitive seizures
     Dosage: 100 MILLIGRAM, ONCE DAILY (QD)
     Route: 041
     Dates: start: 20211207, end: 20211207
  2. LEVETIRACETAM [Suspect]
     Active Substance: LEVETIRACETAM
     Indication: Focal dyscognitive seizures
     Dosage: 500MG DAILY
     Route: 041
     Dates: start: 20211207, end: 20211208
  3. VALPROATE SODIUM [Concomitant]
     Active Substance: VALPROATE SODIUM
     Indication: Focal dyscognitive seizures
     Dosage: 400 MILLIGRAM, ONCE DAILY (QD)
     Route: 048
  4. CEFAZOLIN SODIUM [Concomitant]
     Active Substance: CEFAZOLIN SODIUM
     Indication: Prophylaxis
     Dosage: 1 GRAM, ONCE DAILY (QD)
     Dates: end: 20211207

REACTIONS (3)
  - Atrial fibrillation [Recovering/Resolving]
  - Off label use [Unknown]
  - Underdose [Unknown]

NARRATIVE: CASE EVENT DATE: 20211207
